FAERS Safety Report 5170034-0 (Version None)
Quarter: 2006Q4

REPORT INFORMATION
  Report Type: 
  Country: None (occurrence: None)
  Receive Date: 20061212
  Receipt Date: 20061009
  Transmission Date: 20070319
  Serious: Yes (Hospitalization)
  Sender: FDA-Public Use
  Company Number: HU-ELI_LILLY_AND_COMPANY-HU200610001478

PATIENT
  Age: 66 Year
  Sex: Male

DRUGS (6)
  1. LISPRO 25LIS75NPL [Suspect]
     Indication: DIABETES MELLITUS
     Dosage: 28 IU, EACH MORNING
     Route: 058
     Dates: start: 20060925
  2. LISPRO 25LIS75NPL [Suspect]
     Dosage: 20 IU, EACH EVENING
     Route: 058
     Dates: start: 20060925
  3. ENALAPRIL MALEATE [Concomitant]
     Indication: HYPERTENSION
     Dosage: 5 MG, DAILY (1/D)
     Route: 048
  4. ATORVASTATIN CALCIUM [Concomitant]
     Indication: HYPERLIPIDAEMIA
     Dosage: 40 MG, DAILY (1/D)
     Route: 048
  5. ACETYLSALICYLIC ACID SRT [Concomitant]
     Indication: MYOCARDIAL ISCHAEMIA
     Dosage: 100 MG, DAILY (1/D)
     Route: 048
  6. CLINDAMYCIN [Concomitant]
     Indication: GINGIVITIS
     Dosage: 300 MG, 3/D
     Route: 048

REACTIONS (2)
  - URTICARIA [None]
  - URTICARIA GENERALISED [None]
